FAERS Safety Report 14994667 (Version 2)
Quarter: 2018Q2

REPORT INFORMATION
  Report Type: Spontaneous
  Country: ZA (occurrence: ZA)
  Receive Date: 20180611
  Receipt Date: 20180614
  Transmission Date: 20180711
  Serious: Yes (Other)
  Sender: FDA-Public Use
  Company Number: ZA-PFIZER INC-2018234589

PATIENT
  Age: 61 Year
  Sex: Male

DRUGS (5)
  1. SPIRACTIN /00006201/ [Suspect]
     Active Substance: SPIRONOLACTONE
     Dosage: 25 MG, UNK
  2. DIAPHAGE [Suspect]
     Active Substance: METFORMIN HYDROCHLORIDE
     Dosage: 500 MG, UNK
  3. LOMANOR [Suspect]
     Active Substance: AMLODIPINE BESYLATE
     Dosage: 10 MG, UNK
  4. EPILIZINE CR [Suspect]
     Active Substance: VALPROATE SODIUM
     Dosage: 300 MG, UNK
  5. PRITOR /01102601/ [Suspect]
     Active Substance: TELMISARTAN
     Dosage: 80 MG, UNK

REACTIONS (1)
  - Cerebrovascular accident [Unknown]
